FAERS Safety Report 19886624 (Version 5)
Quarter: 2022Q1

REPORT INFORMATION
  Report Type: Report from Study
  Country: US (occurrence: US)
  Receive Date: 20210928
  Receipt Date: 20220119
  Transmission Date: 20220423
  Serious: Yes (Hospitalization, Other)
  Sender: FDA-Public Use
  Company Number: US-ABBVIE-21K-163-4083321-00

PATIENT
  Age: 72 Year
  Sex: Female
  Weight: 68.100 kg

DRUGS (3)
  1. IMBRUVICA [Suspect]
     Active Substance: IBRUTINIB
     Indication: Chronic lymphocytic leukaemia
     Route: 048
     Dates: start: 202001
  2. PFIZER-BIONTECH COVID-19 VACCINE [Concomitant]
     Active Substance: TOZINAMERAN
     Indication: COVID-19 immunisation
     Dosage: DOSE-1
     Route: 030
     Dates: start: 20210209, end: 20210209
  3. PFIZER-BIONTECH COVID-19 VACCINE [Concomitant]
     Active Substance: TOZINAMERAN
     Dosage: DOSE-2
     Route: 030
     Dates: start: 20210302, end: 20210302

REACTIONS (14)
  - Knee arthroplasty [Recovered/Resolved]
  - Cataract [Unknown]
  - Alopecia [Recovered/Resolved]
  - Trichiasis [Unknown]
  - Onychomadesis [Unknown]
  - Eyelash changes [Unknown]
  - Nail disorder [Unknown]
  - Dysphonia [Unknown]
  - Lymphoedema [Recovered/Resolved]
  - Madarosis [Recovered/Resolved]
  - Myopia [Unknown]
  - Therapeutic response unexpected [Not Recovered/Not Resolved]
  - Hordeolum [Recovered/Resolved]
  - Hordeolum [Recovering/Resolving]

NARRATIVE: CASE EVENT DATE: 20200301
